FAERS Safety Report 10669554 (Version 1)
Quarter: 2014Q4

REPORT INFORMATION
  Report Type: Spontaneous
  Country: US (occurrence: US)
  Receive Date: 20141222
  Receipt Date: 20141222
  Transmission Date: 20150529
  Serious: No
  Sender: FDA-Public Use
  Company Number: US-SA-2014SA162564

PATIENT

DRUGS (1)
  1. AUBAGIO [Suspect]
     Active Substance: TERIFLUNOMIDE
     Route: 065
     Dates: start: 201311

REACTIONS (4)
  - Blood pressure increased [Unknown]
  - Eye disorder [Unknown]
  - Nuclear magnetic resonance imaging abnormal [Unknown]
  - Nystagmus [Unknown]

NARRATIVE: CASE EVENT DATE: 201407
